FAERS Safety Report 18722027 (Version 1)
Quarter: 2021Q1

REPORT INFORMATION
  Report Type: Spontaneous
  Country: FR (occurrence: FR)
  Receive Date: 20210111
  Receipt Date: 20210111
  Transmission Date: 20210419
  Serious: Yes (Other)
  Sender: FDA-Public Use
  Company Number: FR-AUROBINDO-AUR-APL-2021-000469

PATIENT
  Age: 54 Year
  Sex: Male
  Weight: 82 kg

DRUGS (12)
  1. RAMIPRIL. [Suspect]
     Active Substance: RAMIPRIL
     Indication: ACUTE CORONARY SYNDROME
     Dosage: 5 DOSAGE FORM, ONCE A DAY
     Route: 048
     Dates: start: 20201212
  2. KARDEGIC [Suspect]
     Active Substance: ASPIRIN DL-LYSINE
     Indication: ACUTE CORONARY SYNDROME
     Dosage: 1 DOSAGE FORM, ONCE A DAY
     Route: 048
     Dates: start: 20201213
  3. BISOPROLOL QUIVER [Suspect]
     Active Substance: BISOPROLOL FUMARATE
     Indication: ACUTE CORONARY SYNDROME
     Dosage: 2 DOSAGE FORM, ONCE A DAY
     Route: 048
     Dates: start: 20201214
  4. ISOPTINE [Suspect]
     Active Substance: VERAPAMIL HYDROCHLORIDE
     Indication: ANGIOCARDIOGRAM
     Dosage: 2.5 INTERNATIONAL UNIT
     Route: 013
     Dates: start: 20201218, end: 20201218
  5. LIPTRUZET [Suspect]
     Active Substance: ATORVASTATIN CALCIUM\EZETIMIBE
     Indication: ACUTE CORONARY SYNDROME
     Dosage: 1 DOSAGE FORM, ONCE A DAY
     Route: 048
     Dates: start: 20201215
  6. VISIPAQUE [Suspect]
     Active Substance: IODIXANOL
     Indication: ANGIOCARDIOGRAM
     Dosage: 1 DOSAGE FORM (1 TOTAL)
     Route: 013
     Dates: start: 20201218, end: 20201218
  7. LEVEMIR [Suspect]
     Active Substance: INSULIN DETEMIR
     Indication: DIABETES MELLITUS
     Dosage: 14 INTERNATIONAL UNIT, ONCE A DAY
     Route: 058
     Dates: start: 20201215
  8. FUROSEMIDE ARROW 40 MG TABLETS [Suspect]
     Active Substance: FUROSEMIDE
     Indication: ACUTE CORONARY SYNDROME
     Dosage: 1 DOSAGE FORM, ONCE A DAY
     Route: 048
     Dates: start: 20201213
  9. HUMALOG [Suspect]
     Active Substance: INSULIN LISPRO
     Indication: DIABETES MELLITUS
     Dosage: 3 INTERNATIONAL UNIT, ONCE A DAY
     Route: 058
     Dates: start: 20201213
  10. HEPARIN SODIUM. [Suspect]
     Active Substance: HEPARIN SODIUM
     Indication: ANGIOCARDIOGRAM
     Dosage: 600 INTERNATIONAL UNIT
     Route: 013
     Dates: start: 20201218, end: 20201218
  11. METFORMIN ARROW LAB FILM COATED TABLETS 500MG [Suspect]
     Active Substance: METFORMIN HYDROCHLORIDE
     Indication: DIABETES MELLITUS
     Dosage: 2 DOSAGE FORM, ONCE A DAY
     Route: 048
     Dates: start: 20201215
  12. BRILIQUE [Suspect]
     Active Substance: TICAGRELOR
     Indication: ACUTE CORONARY SYNDROME
     Dosage: 2 DOSAGE FORM, ONCE A DAY
     Route: 048
     Dates: start: 20201213

REACTIONS (1)
  - Rash [Not Recovered/Not Resolved]

NARRATIVE: CASE EVENT DATE: 20201221
